FAERS Safety Report 4290308-5 (Version None)
Quarter: 2004Q1

REPORT INFORMATION
  Report Type: 
  Country: None (occurrence: None)
  Receive Date: 20040126
  Receipt Date: 20030916
  Transmission Date: 20041129
  Serious: No
  Sender: FDA-Public Use
  Company Number: USA030126310

PATIENT
  Age: 90 Year
  Sex: Female
  Weight: 54 kg

DRUGS (2)
  1. FORTEO [Suspect]
     Indication: OSTEOPOROSIS
     Dosage: 20 UG/DAY
     Dates: start: 20030110, end: 20030913
  2. LOMOTIL [Concomitant]

REACTIONS (6)
  - ASTHENIA [None]
  - BLOOD CALCIUM INCREASED [None]
  - DIARRHOEA [None]
  - FLATULENCE [None]
  - INJECTION SITE BURNING [None]
  - NAUSEA [None]
